FAERS Safety Report 11264629 (Version 1)
Quarter: 2015Q3

REPORT INFORMATION
  Report Type: Other
  Country: DE (occurrence: DE)
  Receive Date: 20150713
  Receipt Date: 20150713
  Transmission Date: 20151125
  Serious: Yes (Hospitalization, Other)
  Sender: FDA-Public Use
  Company Number: DE-JUBILANT GENERICS LIMITED-1040491

PATIENT
  Age: 60 Year
  Sex: Female

DRUGS (8)
  1. CHLORPROTHIXENE [Suspect]
     Active Substance: CHLORPROTHIXENE
  2. PIPAMPERONE [Suspect]
     Active Substance: PIPAMPERONE
  3. QUETIAPINE FUMARATE. [Suspect]
     Active Substance: QUETIAPINE FUMARATE
  4. HYDROCHLOROTHIAZIDE. [Suspect]
     Active Substance: HYDROCHLOROTHIAZIDE
  5. LITHIUM. [Suspect]
     Active Substance: LITHIUM
  6. GLIMEPIRIDE. [Concomitant]
     Active Substance: GLIMEPIRIDE
  7. L-THYROXINE [Concomitant]
     Active Substance: LEVOTHYROXINE
  8. VALSARTAN. [Suspect]
     Active Substance: VALSARTAN

REACTIONS (5)
  - Blindness cortical [Recovered/Resolved]
  - Acute kidney injury [Recovered/Resolved]
  - Rhabdomyolysis [Recovered/Resolved]
  - Posterior reversible encephalopathy syndrome [Recovered/Resolved]
  - Drug interaction [Recovered/Resolved]

NARRATIVE: CASE EVENT DATE: 20150629
